FAERS Safety Report 8480223-5 (Version None)
Quarter: 2012Q2

REPORT INFORMATION
  Report Type: 
  Country: None (occurrence: None)
  Receive Date: 20120629
  Receipt Date: 20120627
  Transmission Date: 20120825
  Serious: Yes (Other)
  Sender: FDA-Public Use
  Company Number: US-RB-040358-12

PATIENT
  Age: 37 Year
  Sex: Male

DRUGS (6)
  1. SUBOXONE [Suspect]
     Dosage: UNKNOWN DOSING DETAILS
     Route: 065
     Dates: start: 20120601
  2. HYDROCHLOROTHIAZIDE [Concomitant]
     Indication: HYPERTENSION
     Dosage: UNKNOWN DOSING DETAILS
     Route: 065
  3. SUBOXONE [Suspect]
     Indication: DRUG DEPENDENCE
     Dosage: 16-24 MG DAILY
     Route: 060
     Dates: end: 20120501
  4. SUBOXONE [Suspect]
     Indication: DRUG DEPENDENCE
     Route: 060
     Dates: start: 20090101
  5. ALBUTEROL [Concomitant]
     Indication: ASTHMA
     Dosage: INHALER
     Route: 065
  6. SEROQUEL [Concomitant]
     Indication: BIPOLAR DISORDER
     Dosage: UNKNOWN DOSING DETAILS
     Route: 065

REACTIONS (5)
  - CONVULSION [None]
  - ABDOMINAL PAIN [None]
  - DRUG WITHDRAWAL SYNDROME [None]
  - DIARRHOEA [None]
  - PANCREATITIS [None]
